FAERS Safety Report 4357652-4 (Version None)
Quarter: 2004Q2

REPORT INFORMATION
  Report Type: 
  Country: None (occurrence: None)
  Receive Date: 20040511
  Receipt Date: 20040427
  Transmission Date: 20050107
  Serious: No
  Sender: FDA-Public Use
  Company Number: 2004-BP-03099YA

PATIENT
  Age: 75 Year
  Sex: Male

DRUGS (9)
  1. HARNAL (TAMSULOSIN) (NR) [Suspect]
     Indication: BENIGN PROSTATIC HYPERPLASIA
     Dosage: 0.2 MG (0.1 MG, 01. UG BID)
     Route: 048
     Dates: start: 20040202, end: 20040420
  2. HYPOTENSIVE DRUG (NR) [Suspect]
     Route: 048
  3. FAMOTIDINE [Concomitant]
  4. TOCOPHERYL NICOTINATE            (TOCOPHERYL NICOTINATE) (NR) [Concomitant]
  5. BUFFERIN (NR) [Concomitant]
  6. AMLODIPINE BESILATE           (AMLODIPINE BESILATE) (NR) [Concomitant]
  7. METILDIGOXIN            (NR) [Concomitant]
  8. GLYCERYL TRINITRATE (GLYCERYL TRINITRATE) (NR) [Concomitant]
  9. TORSEMIDE [Concomitant]

REACTIONS (6)
  - DRUG INTERACTION [None]
  - FALL [None]
  - INSOMNIA [None]
  - LOSS OF CONSCIOUSNESS [None]
  - ORTHOSTATIC HYPOTENSION [None]
  - SYNCOPE [None]
